FAERS Safety Report 25183424 (Version 1)
Quarter: 2025Q2

REPORT INFORMATION
  Report Type: Spontaneous
  Country: US (occurrence: None)
  Receive Date: 20250409
  Receipt Date: 20250409
  Transmission Date: 20250716
  Serious: No
  Sender: FDA-CTU
  Company Number: None

PATIENT
  Age: 44 Year
  Sex: Female
  Weight: 76.5 kg

DRUGS (5)
  1. AJOVY [Suspect]
     Active Substance: FREMANEZUMAB-VFRM
     Indication: Migraine
  2. LAMOTRIGINE [Concomitant]
     Active Substance: LAMOTRIGINE
  3. PRAVASTATIN [Concomitant]
     Active Substance: PRAVASTATIN
  4. FIORICET [Concomitant]
     Active Substance: ACETAMINOPHEN\BUTALBITAL\CAFFEINE
  5. VITAMIN D [Concomitant]
     Active Substance: VITAMIN D NOS

REACTIONS (6)
  - Dizziness [None]
  - Hot flush [None]
  - Insomnia [None]
  - Arthralgia [None]
  - Fear of disease [None]
  - Therapeutic product effect incomplete [None]

NARRATIVE: CASE EVENT DATE: 20241112
